FAERS Safety Report 8677723 (Version 5)
Quarter: 2013Q2

REPORT INFORMATION
  Report Type: Report from Study
  Country: DE (occurrence: DE)
  Receive Date: 20120723
  Receipt Date: 20130429
  Transmission Date: 20140414
  Serious: Yes (Hospitalization)
  Sender: FDA-Public Use
  Company Number: DE-PFIZER INC-2012170620

PATIENT
  Age: 70 Year
  Sex: Male
  Weight: 69 kg

DRUGS (7)
  1. AXITINIB [Suspect]
     Indication: METASTATIC RENAL CELL CARCINOMA
     Dosage: 2 MG, 2X/DAY
     Route: 048
     Dates: start: 20090401, end: 20120705
  2. TORASEMIDE [Concomitant]
     Indication: PROPHYLAXIS
     Dosage: 40 MG, 1X/DAY
     Route: 048
     Dates: start: 20120229
  3. TICAGRELOR [Concomitant]
     Indication: THROMBOSIS PROPHYLAXIS
     Dosage: UNK, 1X/DAY
     Route: 048
     Dates: start: 20120229
  4. ASS [Concomitant]
     Indication: THROMBOSIS PROPHYLAXIS
     Dosage: UNK, 1X/DAY
     Route: 048
     Dates: start: 20120229
  5. SIMVASTATIN [Concomitant]
     Indication: PROPHYLAXIS
     Dosage: UNK, 1X/DAY
     Route: 048
     Dates: start: 20120229
  6. CANDESARTAN [Concomitant]
     Indication: HYPERTENSION
     Dosage: 16 MG, 1X/DAY
     Route: 048
     Dates: start: 20120229
  7. PANTOZOL [Concomitant]
     Indication: PROPHYLAXIS
     Dosage: 40 MG, 1X/DAY
     Route: 048
     Dates: start: 20090527

REACTIONS (1)
  - Mitral valve incompetence [Recovered/Resolved]
